FAERS Safety Report 12857232 (Version 1)
Quarter: 2016Q4

REPORT INFORMATION
  Report Type: Spontaneous
  Country: GB (occurrence: GB)
  Receive Date: 20161018
  Receipt Date: 20161018
  Transmission Date: 20170207
  Serious: Yes (Hospitalization)
  Sender: FDA-Public Use
  Company Number: GB-PFIZER INC-2016481493

PATIENT
  Age: 40 Year
  Sex: Female

DRUGS (6)
  1. ARIPIPRAZOLE. [Concomitant]
     Active Substance: ARIPIPRAZOLE
     Dosage: UNK
  2. LAMOTRIGINE. [Concomitant]
     Active Substance: LAMOTRIGINE
     Dosage: UNK
  3. CHAMPIX [Suspect]
     Active Substance: VARENICLINE TARTRATE
     Indication: SMOKING CESSATION THERAPY
     Dosage: UNK
     Route: 048
     Dates: end: 20160906
  4. SODIUM VALPROATE [Concomitant]
     Active Substance: VALPROATE SODIUM
     Dosage: UNK
  5. PRAZOSIN [Concomitant]
     Active Substance: PRAZOSIN
     Dosage: UNK
  6. PROPRANOLOL [Concomitant]
     Active Substance: PROPRANOLOL\PROPRANOLOL HYDROCHLORIDE
     Dosage: UNK

REACTIONS (5)
  - Acute psychosis [Recovering/Resolving]
  - Violence-related symptom [Recovering/Resolving]
  - Paranoia [Recovering/Resolving]
  - Suicidal ideation [Recovering/Resolving]
  - Flashback [Recovering/Resolving]
